FAERS Safety Report 20955226 (Version 1)
Quarter: 2022Q2

REPORT INFORMATION
  Report Type: Spontaneous
  Country: GB (occurrence: GB)
  Receive Date: 20220614
  Receipt Date: 20220614
  Transmission Date: 20220720
  Serious: Yes (Life-Threatening, Hospitalization, Other)
  Sender: FDA-Public Use
  Company Number: GB-MHRA-MED-202206041007009180-SDYVC

PATIENT
  Sex: Female

DRUGS (8)
  1. LOSARTAN POTASSIUM [Suspect]
     Active Substance: LOSARTAN POTASSIUM
     Dosage: 25MG OM (ADDITIONAL INFO: ROUTE)
  2. FUROSEMIDE [Suspect]
     Active Substance: FUROSEMIDE
     Dosage: 40MG OM (ADDITIONAL INFO: ROUTE)
  3. METFORMIN [Suspect]
     Active Substance: METFORMIN HYDROCHLORIDE
     Dosage: 1G BD (ADDITIONAL INFO: ROUTE)
  4. ASPIRIN [Concomitant]
     Active Substance: ASPIRIN
     Dosage: UNK (ADDITIONAL INFO: ROUTE)
  5. BISOPROLOL [Concomitant]
     Active Substance: BISOPROLOL
     Dosage: UNK (ADDITIONAL INFO: ROUTE)
  6. DOXAZOSIN [Concomitant]
     Active Substance: DOXAZOSIN MESYLATE
     Dosage: UNK (ADDITIONAL INFO: ROUTE)
  7. OMEPRAZOLE [Concomitant]
     Active Substance: OMEPRAZOLE
     Dosage: UNK (ADDITIONAL INFO: ROUTE)
  8. ACETAMINOPHEN [Concomitant]
     Active Substance: ACETAMINOPHEN
     Dosage: UNK (ADDITIONAL INFO: ROUTE)

REACTIONS (1)
  - Acute kidney injury [Unknown]
